FAERS Safety Report 22138807 (Version 2)
Quarter: 2023Q2

REPORT INFORMATION
  Report Type: Other
  Country: ES (occurrence: ES)
  Receive Date: 20230327
  Receipt Date: 20230426
  Transmission Date: 20230722
  Serious: Yes (Other)
  Sender: FDA-Public Use
  Company Number: ES-MACLEODS PHARMACEUTICALS US LTD-MAC2023040379

PATIENT

DRUGS (10)
  1. TENOFOVIR [Interacting]
     Active Substance: TENOFOVIR
     Indication: Antiretroviral therapy
     Dosage: UNK (START DATE: 2008)
     Route: 065
  2. TENOFOVIR [Interacting]
     Active Substance: TENOFOVIR
     Indication: HIV infection
  3. EFAVIRENZ [Interacting]
     Active Substance: EFAVIRENZ
     Indication: Antiretroviral therapy
     Dosage: UNK (START DATE: 2008)
     Route: 048
  4. EFAVIRENZ [Interacting]
     Active Substance: EFAVIRENZ
     Indication: HIV infection
  5. RITONAVIR [Interacting]
     Active Substance: RITONAVIR
     Indication: HIV infection
     Dosage: UNK (START DATE: 2008)
     Route: 065
  6. RITONAVIR [Interacting]
     Active Substance: RITONAVIR
     Indication: Antiretroviral therapy
  7. EMTRICITABINE [Interacting]
     Active Substance: EMTRICITABINE
     Indication: Antiretroviral therapy
     Dosage: UNK (START DATE: 2008)
     Route: 065
  8. EMTRICITABINE [Interacting]
     Active Substance: EMTRICITABINE
     Indication: HIV infection
  9. LOPINAVIR [Interacting]
     Active Substance: LOPINAVIR
     Indication: HIV infection
     Dosage: UNK (START DATE: 2008)
     Route: 065
  10. LOPINAVIR [Interacting]
     Active Substance: LOPINAVIR
     Indication: Antiretroviral therapy

REACTIONS (4)
  - Hepatotoxicity [Recovered/Resolved]
  - Neurotoxicity [Recovered/Resolved]
  - Disseminated tuberculosis [Unknown]
  - Drug interaction [Unknown]
